FAERS Safety Report 4331472-9 (Version None)
Quarter: 2004Q1

REPORT INFORMATION
  Report Type: 
  Country: None (occurrence: None)
  Receive Date: 20040329
  Receipt Date: 20040312
  Transmission Date: 20041129
  Serious: Yes (Other)
  Sender: FDA-Public Use
  Company Number: 2004017393

PATIENT
  Sex: Female

DRUGS (4)
  1. NARDIL [Suspect]
     Indication: AGORAPHOBIA
     Dosage: (DAILY), ORAL
     Route: 048
     Dates: end: 20040211
  2. NARDIL [Suspect]
     Indication: PANIC ATTACK
     Dosage: (DAILY), ORAL
     Route: 048
     Dates: end: 20040211
  3. LEXAPRO [Suspect]
     Indication: ILL-DEFINED DISORDER
     Dosage: ORAL
     Route: 048
     Dates: start: 20040301
  4. ESTROGEN (ESTROGEN NOS) [Concomitant]

REACTIONS (3)
  - AGORAPHOBIA [None]
  - DISEASE RECURRENCE [None]
  - NAUSEA [None]
